FAERS Safety Report 19287992 (Version 1)
Quarter: 2021Q2

REPORT INFORMATION
  Report Type: Spontaneous
  Country: JP (occurrence: JP)
  Receive Date: 20210521
  Receipt Date: 20210521
  Transmission Date: 20210717
  Serious: Yes (Life-Threatening, Hospitalization, Other)
  Sender: FDA-Public Use
  Company Number: JP-ROCHE-2834283

PATIENT
  Age: 70 Year
  Sex: Female
  Weight: 58.3 kg

DRUGS (12)
  1. PREGABALIN. [Concomitant]
     Active Substance: PREGABALIN
     Dosage: UNK
     Route: 048
     Dates: start: 202012
  2. METHOTREXATE. [Suspect]
     Active Substance: METHOTREXATE
     Dosage: AT A DOSE OF 10 MG, WEEKLY
     Route: 048
  3. LOXONIN [Concomitant]
     Active Substance: LOXOPROFEN SODIUM
     Dosage: UNK, PRN
     Route: 048
     Dates: end: 20210313
  4. METHOTREXATE. [Suspect]
     Active Substance: METHOTREXATE
     Dosage: AT A DOSE OF 4 MG, WEEKLY
     Route: 048
     Dates: start: 20160602, end: 20210313
  5. FOLIAMIN [Concomitant]
     Active Substance: FOLIC ACID
     Dosage: AT A DOSE OF 5 MG, WEEKLY
     Route: 048
     Dates: start: 2006, end: 20210313
  6. METOANA [Concomitant]
     Dosage: ANAGLIPTIN AT A DOSE OF 200 MG/METFORMIN AT A DOSE OF 1000 MG, TWICE A DAY
     Route: 048
  7. ACTEMRA [Suspect]
     Active Substance: TOCILIZUMAB
     Indication: RHEUMATOID ARTHRITIS
     Dosage: 480 MILLIGRAM, ONCE/MONTH
     Route: 041
     Dates: start: 20210303, end: 20210303
  8. PREGABALIN. [Concomitant]
     Active Substance: PREGABALIN
     Dosage: 50 MILLIGRAM, QD
     Route: 048
     Dates: start: 20210308, end: 20210313
  9. MUCOSTA [Concomitant]
     Active Substance: REBAMIPIDE
     Dosage: UNK, PRN
     Route: 048
     Dates: end: 20210313
  10. ABATACEPT [Suspect]
     Active Substance: ABATACEPT
     Indication: RHEUMATOID ARTHRITIS
     Dosage: 125 MILLIGRAM, ONCE/WEEK
     Route: 058
     Dates: start: 20160602, end: 20210303
  11. GLIBENCLAMIDE [Concomitant]
     Active Substance: GLYBURIDE
     Dosage: 1.25 MILLIGRAM, QD
     Route: 048
     Dates: end: 20210313
  12. METHOTREXATE. [Suspect]
     Active Substance: METHOTREXATE
     Indication: RHEUMATOID ARTHRITIS
     Dosage: UNKNOWN
     Route: 048
     Dates: start: 2006

REACTIONS (3)
  - Central nervous system lymphoma [Not Recovered/Not Resolved]
  - Altered state of consciousness [Recovering/Resolving]
  - Hydrocephalus [Recovering/Resolving]

NARRATIVE: CASE EVENT DATE: 20210305
